FAERS Safety Report 6809344-7 (Version None)
Quarter: 2010Q2

REPORT INFORMATION
  Report Type: 
  Country: None (occurrence: None)
  Receive Date: 20100630
  Receipt Date: 20100309
  Transmission Date: 20101027
  Serious: Yes (Other)
  Sender: FDA-Public Use
  Company Number: US-ASTRAZENECA-2008UW12259

PATIENT
  Age: 454 Month
  Sex: Female
  Weight: 72.1 kg

DRUGS (14)
  1. SEROQUEL [Suspect]
     Indication: BIPOLAR DISORDER
     Route: 048
     Dates: start: 20000510
  2. SEROQUEL [Suspect]
     Indication: BIPOLAR I DISORDER
     Route: 048
     Dates: start: 20000510
  3. SEROQUEL [Suspect]
     Dosage: 800-1000 MG
     Route: 048
     Dates: start: 20000609
  4. SEROQUEL [Suspect]
     Dosage: 800-1000 MG
     Route: 048
     Dates: start: 20000609
  5. ABILIFY [Concomitant]
  6. GEODON [Concomitant]
  7. HALDOL [Concomitant]
     Dates: start: 20040101
  8. RISPERDAL [Concomitant]
  9. ZYPREXA [Concomitant]
  10. TRAZODONE HYDROCHLORIDE [Concomitant]
     Dates: start: 20030101, end: 20050101
  11. ZOLOFT [Concomitant]
     Dates: start: 20030701, end: 20040701
  12. WELLBUTRIN [Concomitant]
     Dates: start: 20011001, end: 20020201
  13. LAMICTAL [Concomitant]
     Dosage: 25 MG QAM ,2 QHS
     Dates: start: 20000510
  14. NEURONTIN [Concomitant]
     Dosage: 600 MG-800 MG
     Dates: start: 20000510

REACTIONS (5)
  - BLOOD CHOLESTEROL INCREASED [None]
  - DIABETES MELLITUS [None]
  - NEUROPATHY PERIPHERAL [None]
  - REPRODUCTIVE TRACT DISORDER [None]
  - UTERINE DISORDER [None]
